FAERS Safety Report 5927756-0 (Version None)
Quarter: 2008Q4

REPORT INFORMATION
  Report Type: 
  Country: None (occurrence: None)
  Receive Date: 20081023
  Receipt Date: 20070912
  Transmission Date: 20090506
  Serious: Yes (Other)
  Sender: FDA-Public Use
  Company Number: US-ASTRAZENECA-2007UW21611

PATIENT
  Age: 43 Year
  Sex: Male

DRUGS (2)
  1. MERREM [Suspect]
     Indication: ABSCESS
     Route: 042
  2. MERREM [Suspect]
     Indication: ABDOMINAL ABSCESS
     Route: 042

REACTIONS (1)
  - CONVULSION [None]
